FAERS Safety Report 4691022-4 (Version None)
Quarter: 2005Q2

REPORT INFORMATION
  Report Type: 
  Country: None (occurrence: None)
  Receive Date: 20050610
  Receipt Date: 20050530
  Transmission Date: 20051028
  Serious: Yes (Hospitalization)
  Sender: FDA-Public Use
  Company Number: 2005081849

PATIENT
  Age: 53 Year
  Sex: Female

DRUGS (4)
  1. FRAGMIN [Suspect]
     Indication: ILL-DEFINED DISORDER
     Dosage: 0.6 ML (25000 IU/ML) (ONE TIME DOSE), SUBCUTANEOUS
     Route: 058
     Dates: start: 20050414, end: 20050414
  2. SIMVASTATIN 9SIMVASTATIN) [Concomitant]
  3. WARFARIN SODIUM [Concomitant]
  4. METROPROLOL (METOPROLOL ) [Concomitant]

REACTIONS (14)
  - ANAPHYLACTIC REACTION [None]
  - ASTHENIA [None]
  - BLOOD PRESSURE IMMEASURABLE [None]
  - BLOOD PRESSURE INCREASED [None]
  - DYSPNOEA [None]
  - FOAMING AT MOUTH [None]
  - LIVEDO RETICULARIS [None]
  - LOSS OF CONSCIOUSNESS [None]
  - MOTOR DYSFUNCTION [None]
  - PO2 DECREASED [None]
  - PULSE PRESSURE DECREASED [None]
  - SKIN DISCOLOURATION [None]
  - THROMBOCYTOPENIA [None]
  - VISUAL DISTURBANCE [None]
